FAERS Safety Report 5812471-4 (Version None)
Quarter: 2008Q3

REPORT INFORMATION
  Report Type: 
  Country: None (occurrence: None)
  Receive Date: 20080716
  Receipt Date: 20080716
  Transmission Date: 20090109
  Serious: Yes (Other)
  Sender: FDA-Public Use
  Company Number: None

PATIENT
  Age: 68 Year
  Sex: Male
  Weight: 86.1834 kg

DRUGS (2)
  1. GABAPENTIN [Suspect]
     Indication: ANXIETY
     Dosage: 400 MG 2 X A DAY ORAL
     Route: 048
     Dates: start: 20080401, end: 20080415
  2. GABAPENTIN [Suspect]
     Indication: BIPOLAR I DISORDER
     Dosage: 400 MG 2 X A DAY ORAL
     Route: 048
     Dates: start: 20080401, end: 20080415

REACTIONS (5)
  - ANXIETY [None]
  - DEPRESSION [None]
  - GASTRIC DISORDER [None]
  - POOR QUALITY DRUG ADMINISTERED [None]
  - THERAPEUTIC PRODUCT CONTAMINATION [None]
